FAERS Safety Report 9139988 (Version 1)
Quarter: 2013Q1

REPORT INFORMATION
  Report Type: Spontaneous
  Country: US (occurrence: US)
  Receive Date: 20130305
  Receipt Date: 20130305
  Transmission Date: 20140127
  Serious: No
  Sender: FDA-Public Use
  Company Number: US-B.I. PHARMACEUTICALS,INC./RIDGEFIELD-2013-BI-05340BP

PATIENT
  Age: 87 None
  Sex: Female
  Weight: 52 kg

DRUGS (2)
  1. PRADAXA [Suspect]
     Indication: CARDIAC ASSISTANCE DEVICE USER
     Dosage: 300 MG
     Route: 048
     Dates: start: 201210
  2. SINGULAIR [Concomitant]
     Dates: start: 20121025

REACTIONS (4)
  - Constipation [Recovered/Resolved]
  - Onychoclasis [Not Recovered/Not Resolved]
  - Haemorrhoids [Recovered/Resolved]
  - Tooth erosion [Not Recovered/Not Resolved]
